FAERS Safety Report 4383353-2 (Version None)
Quarter: 2004Q2

REPORT INFORMATION
  Report Type: 
  Country: None (occurrence: None)
  Receive Date: 20040622
  Receipt Date: 20040622
  Transmission Date: 20050107
  Serious: Yes (Life-Threatening)
  Sender: FDA-Public Use
  Company Number: None

PATIENT
  Age: 73 Year
  Sex: Female
  Weight: 64.4108 kg

DRUGS (3)
  1. ZAROXOLYN [Suspect]
     Indication: HYPERTENSION
     Dosage: 2.5 MG PO QD
     Route: 048
     Dates: start: 20030801
  2. CARDIZEM LA [Suspect]
     Indication: CORONARY ARTERY DISEASE
     Dosage: 360 MG PO QD
     Route: 048
     Dates: start: 20030801
  3. LESCOL XL [Suspect]
     Dates: start: 20030801

REACTIONS (3)
  - DYSPNOEA [None]
  - PHARMACEUTICAL PRODUCT COMPLAINT [None]
  - THROAT TIGHTNESS [None]
